FAERS Safety Report 8558353-9 (Version None)
Quarter: 2012Q3

REPORT INFORMATION
  Report Type: 
  Country: None (occurrence: None)
  Receive Date: 20120801
  Receipt Date: 20120720
  Transmission Date: 20120928
  Serious: Yes (Other)
  Sender: FDA-Public Use
  Company Number: US-ELI_LILLY_AND_COMPANY-US201207007350

PATIENT
  Sex: Female

DRUGS (3)
  1. HUMULIN R [Suspect]
     Dosage: 50 U, EACH EVENING
     Dates: start: 20090101
  2. GLUCOPHAGE [Concomitant]
  3. HUMULIN R [Suspect]
     Indication: DIABETES MELLITUS
     Dosage: 55 U, BID
     Dates: start: 20090101

REACTIONS (5)
  - TRANSIENT ISCHAEMIC ATTACK [None]
  - BLOOD GLUCOSE DECREASED [None]
  - DRUG DOSE OMISSION [None]
  - CEREBROVASCULAR ACCIDENT [None]
  - SOMNOLENCE [None]
